FAERS Safety Report 23332941 (Version 1)
Quarter: 2023Q4

REPORT INFORMATION
  Report Type: Report from Study
  Country: US (occurrence: US)
  Receive Date: 20231222
  Receipt Date: 20231222
  Transmission Date: 20240110
  Serious: Yes (Hospitalization, Other)
  Sender: FDA-Public Use
  Company Number: US-SUN PHARMACEUTICAL INDUSTRIES LTD-2023R1-424835

PATIENT
  Sex: Female

DRUGS (1)
  1. CLOZAPINE [Suspect]
     Active Substance: CLOZAPINE
     Indication: Product used for unknown indication
     Dosage: 2100 MILLIGRAM, DAILY
     Route: 048

REACTIONS (6)
  - Mental status changes [Unknown]
  - Dementia [Unknown]
  - Urinary tract infection [Unknown]
  - Fall [Unknown]
  - Anaemia [Unknown]
  - Influenza [Unknown]
